FAERS Safety Report 6556854-6 (Version None)
Quarter: 2010Q1

REPORT INFORMATION
  Report Type: 
  Country: None (occurrence: None)
  Receive Date: 20100128
  Receipt Date: 20100122
  Transmission Date: 20100710
  Serious: Yes (Hospitalization)
  Sender: FDA-Public Use
  Company Number: PHHO2010KR00549

PATIENT
  Sex: Male
  Weight: 66.5 kg

DRUGS (4)
  1. ERL 080A ERL+TAB [Suspect]
     Indication: RENAL TRANSPLANT
     Dosage: 720 MG, BID
     Route: 048
     Dates: start: 20091106
  2. NEORAL [Suspect]
     Indication: RENAL TRANSPLANT
     Dosage: 250 MG, QD
     Route: 048
     Dates: start: 20091103
  3. DIOVAN [Suspect]
  4. PREDNISOLONE [Concomitant]

REACTIONS (2)
  - BK VIRUS INFECTION [None]
  - KIDNEY FIBROSIS [None]
